FAERS Safety Report 13097939 (Version 1)
Quarter: 2017Q1

REPORT INFORMATION
  Report Type: Report from Study
  Country: US (occurrence: US)
  Receive Date: 20170109
  Receipt Date: 20170109
  Transmission Date: 20170428
  Serious: No
  Sender: FDA-Public Use
  Company Number: GXBR2016US003636

PATIENT
  Sex: Male
  Weight: 54.42 kg

DRUGS (1)
  1. OMNITROPE [Suspect]
     Active Substance: SOMATROPIN
     Indication: HYPOPITUITARISM
     Dosage: UNK DF, QD
     Route: 058
     Dates: start: 2008

REACTIONS (1)
  - Incorrect dose administered [Not Recovered/Not Resolved]
